FAERS Safety Report 21650503 (Version 1)
Quarter: 2022Q4

REPORT INFORMATION
  Report Type: Spontaneous
  Country: US (occurrence: None)
  Receive Date: 20221124
  Receipt Date: 20221124
  Transmission Date: 20230113
  Serious: Yes (Hospitalization)
  Sender: FDA-Public Use
  Company Number: None

PATIENT
  Age: 3 Year
  Sex: Female

DRUGS (7)
  1. OSELTAMIVIR PHOSPHATE [Suspect]
     Active Substance: OSELTAMIVIR PHOSPHATE
     Indication: Influenza
     Dosage: OTHER QUANTITY : 7.5 ML;?FREQUENCY : EVERY 12 HOURS;?
     Route: 048
     Dates: start: 20221121, end: 20221122
  2. Eucrissa [Concomitant]
  3. CHILDREN^S MULTIVITAMIN [Concomitant]
  4. Children^s Tylenol, [Concomitant]
  5. CHILDRENS MOTRIN [Concomitant]
     Active Substance: IBUPROFEN
  6. Zarbee^s Cold + Mucous, [Concomitant]
  7. CVS Brand BABY Nighttime Cold syrup [Concomitant]

REACTIONS (1)
  - Drug hypersensitivity [None]

NARRATIVE: CASE EVENT DATE: 20221122
